FAERS Safety Report 10152510 (Version 1)
Quarter: 2014Q2

REPORT INFORMATION
  Report Type: Spontaneous
  Country: US (occurrence: US)
  Receive Date: 20140505
  Receipt Date: 20140505
  Transmission Date: 20141212
  Serious: No
  Sender: FDA-Public Use
  Company Number: US-BAYER-2014-064676

PATIENT
  Age: 49 Year
  Sex: Female
  Weight: 72.56 kg

DRUGS (1)
  1. ALEVE CAPLET [Suspect]
     Indication: TOOTHACHE
     Dosage: 2 DF, Q4HR
     Route: 048
     Dates: start: 20140427

REACTIONS (4)
  - Abdominal pain upper [Recovered/Resolved]
  - Abdominal pain upper [Recovered/Resolved]
  - Drug ineffective [None]
  - Extra dose administered [None]
